FAERS Safety Report 10008834 (Version 1)
Quarter: 2014Q1

REPORT INFORMATION
  Report Type: Spontaneous
  Country: US (occurrence: US)
  Receive Date: 20140312
  Receipt Date: 20140312
  Transmission Date: 20141002
  Serious: No
  Sender: FDA-Public Use
  Company Number: US-INCYTE CORPORATION-2012IN000718

PATIENT
  Age: 65 Year
  Sex: Female

DRUGS (5)
  1. JAKAFI [Suspect]
     Indication: POLYCYTHAEMIA VERA
     Dosage: 10 MG, BID
     Route: 048
     Dates: start: 201204
  2. TRILEVLOL [Concomitant]
     Dosage: 300 MG, BID
  3. PREDNISONE [Concomitant]
     Dosage: UNK
     Dates: end: 201204
  4. ANAGRELIDE [Concomitant]
     Dosage: UNK
     Dates: end: 201204
  5. HYDREA [Concomitant]

REACTIONS (1)
  - Pain in extremity [Not Recovered/Not Resolved]
